FAERS Safety Report 4516555-2 (Version None)
Quarter: 2004Q4

REPORT INFORMATION
  Report Type: 
  Country: None (occurrence: None)
  Receive Date: 20041202
  Receipt Date: 20041013
  Transmission Date: 20050328
  Serious: Yes (Death, Life-Threatening, Hospitalization, Disabling, Other)
  Sender: FDA-Public Use
  Company Number: US-NOVOPROD-239810

PATIENT
  Age: 62 Year
  Sex: Male
  Weight: 97 kg

DRUGS (21)
  1. NOVOSEVEN [Suspect]
     Indication: OPERATIVE HAEMORRHAGE
     Dosage: 3 DOSES (Q2 H)
     Dates: start: 20041011, end: 20041011
  2. LOTREL [Concomitant]
     Indication: HYPERTENSION
     Dosage: 1 TAB, QD
     Route: 048
     Dates: start: 20030101
  3. COSOPT [Concomitant]
     Indication: GLAUCOMA
     Dosage: 1 GTT, QD
     Route: 031
     Dates: start: 19890101
  4. ANCEF [Concomitant]
     Indication: ANTIBACTERIAL PROPHYLAXIS
     Dosage: 2 G, BID
     Route: 042
     Dates: start: 20041011, end: 20041011
  5. FENTANYL [Concomitant]
     Indication: ANALGESIC THERAPY
     Dosage: 750 UG, QD
     Dates: start: 20041011, end: 20041011
  6. MIDAZOLAM HCL [Concomitant]
     Indication: ANXIETY
     Dosage: 2 MG, QD
     Dates: start: 20041011, end: 20041011
  7. EPHEDRINE SUL CAP [Concomitant]
     Indication: BLOOD PRESSURE FLUCTUATION
     Dosage: 25 MG, UNK
     Dates: start: 20041011, end: 20041011
  8. CALCIUM CHLORIDE ^BIOTIKA^ [Concomitant]
     Indication: ELECTROLYTE SUBSTITUTION THERAPY
     Dosage: 500 MG, UNK
     Dates: start: 20041011, end: 20041011
  9. CALCIUM CHLORIDE ^BIOTIKA^ [Concomitant]
     Dosage: 500 MG, UNK
     Dates: start: 20041011
  10. PHENYLEPHRINE [Concomitant]
     Indication: BLOOD PRESSURE FLUCTUATION
     Dosage: 350 MG, IN OR
     Dates: start: 20041011, end: 20041011
  11. PHENYLEPHRINE [Concomitant]
     Dosage: 20 MG X 4 DOSES
     Dates: start: 20041011, end: 20041012
  12. PHENYLEPHRINE [Concomitant]
     Dosage: 40 MG, SINGLE
     Dates: start: 20041012, end: 20041012
  13. KYTRIL [Concomitant]
     Indication: PROPHYLAXIS OF NAUSEA AND VOMITING
     Dosage: .1 MG, SINGLE
     Route: 042
     Dates: start: 20041011, end: 20041011
  14. SEVOFLURANE [Concomitant]
     Indication: ANAESTHESIA
     Dosage: 1/3 - 1/2 MAC (0.6% - 1.1%)
     Dates: start: 20041011, end: 20041011
  15. ROCURONIUM [Concomitant]
     Indication: NEUROMUSCULAR BLOCKING THERAPY
     Dosage: 50 MG, SINGLE
     Dates: start: 20041011, end: 20041011
  16. VECURONIUM [Concomitant]
     Indication: NEUROMUSCULAR BLOCKING THERAPY
     Dosage: 3 MG, QD
     Dates: start: 20041011, end: 20041011
  17. MORPHINE [Concomitant]
     Indication: ANALGESIC THERAPY
     Dosage: 10 MG, QD
     Dates: start: 20041011, end: 20041011
  18. SODIUM CHLORIDE 0.9% [Concomitant]
     Dosage: 250 ML X 4
     Dates: start: 20041011, end: 20041012
  19. SODIUM CHLORIDE 0.9% [Concomitant]
     Dosage: 500 ML X 1
     Dates: start: 20041012, end: 20041012
  20. REGULAR INSULIN [Concomitant]
     Indication: HYPERGLYCAEMIA
     Dosage: UNK, UNK
     Dates: start: 20041012
  21. VIOXX [Concomitant]
     Dates: start: 20031001, end: 20040929

REACTIONS (7)
  - ARTERIAL DISORDER [None]
  - CAROTID ARTERY OCCLUSION [None]
  - CEREBRAL ARTERY OCCLUSION [None]
  - CEREBROVASCULAR ACCIDENT [None]
  - ELECTROCARDIOGRAM ABNORMAL [None]
  - HYPERPLASIA [None]
  - TROPONIN I INCREASED [None]
